FAERS Safety Report 23278443 (Version 1)
Quarter: 2023Q4

REPORT INFORMATION
  Report Type: Spontaneous
  Country: JP (occurrence: None)
  Receive Date: 20231208
  Receipt Date: 20231208
  Transmission Date: 20240110
  Serious: Yes (Other)
  Sender: FDA-Public Use
  Company Number: 2023A277590

PATIENT
  Age: 85 Year
  Sex: Female

DRUGS (2)
  1. FULVESTRANT [Suspect]
     Active Substance: FULVESTRANT
     Indication: Breast cancer female
     Route: 030
  2. PALBOCICLIB [Suspect]
     Active Substance: PALBOCICLIB
     Indication: Breast cancer
     Route: 048

REACTIONS (5)
  - Malignant neoplasm progression [Unknown]
  - Metastases to spine [Unknown]
  - Retroperitoneal neoplasm metastatic [Unknown]
  - Peritonitis [Unknown]
  - Large intestine perforation [Unknown]
